FAERS Safety Report 10684835 (Version 1)
Quarter: 2014Q4

REPORT INFORMATION
  Report Type: Spontaneous
  Country: US (occurrence: US)
  Receive Date: 20141231
  Receipt Date: 20141231
  Transmission Date: 20150529
  Serious: Yes (Hospitalization, Other)
  Sender: FDA-Public Use
  Company Number: US-ASTRAZENECA-2014SE98788

PATIENT
  Sex: Female

DRUGS (1)
  1. ENTOCORT EC [Suspect]
     Active Substance: BUDESONIDE
     Indication: COLITIS MICROSCOPIC
     Dosage: UNKNOWN
     Route: 048

REACTIONS (8)
  - Weight decreased [Unknown]
  - Off label use [Unknown]
  - Intentional product misuse [Unknown]
  - Renal disorder [Unknown]
  - Dehydration [Unknown]
  - Colitis [Unknown]
  - Pain [Unknown]
  - Therapeutic response unexpected [Unknown]
